FAERS Safety Report 5730802-0 (Version None)
Quarter: 2008Q2

REPORT INFORMATION
  Report Type: 
  Country: None (occurrence: None)
  Receive Date: 20080502
  Receipt Date: 20080423
  Transmission Date: 20081010
  Serious: Yes (Hospitalization, Other)
  Sender: FDA-Public Use
  Company Number: 027133

PATIENT
  Age: 9 Year
  Sex: Female

DRUGS (3)
  1. IBUPROFEN [Suspect]
     Indication: VIRAL INFECTION
  2. IBUPROFEN [Suspect]
     Dosage: NO MORE THAN 10 MG/KG/DOSE, Q8HR
  3. ACETAMINOPHEN [Concomitant]

REACTIONS (17)
  - ARTHROPOD BITE [None]
  - BAND NEUTROPHIL PERCENTAGE INCREASED [None]
  - CHOLESTASIS [None]
  - HEPATIC CIRRHOSIS [None]
  - HEPATIC FIBROSIS [None]
  - HEPATITIS [None]
  - HEPATOSPLENOMEGALY [None]
  - IMMUNE SYSTEM DISORDER [None]
  - LYMPHADENOPATHY [None]
  - MALNUTRITION [None]
  - PANCREATITIS [None]
  - PLATELET COUNT DECREASED [None]
  - STEVENS-JOHNSON SYNDROME [None]
  - TREATMENT FAILURE [None]
  - VANISHING BILE DUCT SYNDROME [None]
  - VIRAL INFECTION [None]
  - WHITE BLOOD CELL COUNT DECREASED [None]
